FAERS Safety Report 8075480-3 (Version None)
Quarter: 2012Q1

REPORT INFORMATION
  Report Type: 
  Country: None (occurrence: None)
  Receive Date: 20120120
  Receipt Date: 20120105
  Transmission Date: 20120608
  Serious: Yes (Hospitalization)
  Sender: FDA-Public Use
  Company Number: EU-2012-10004

PATIENT
  Age: 73 Year
  Sex: Male

DRUGS (4)
  1. PLETAL [Suspect]
     Indication: ARTERIAL DISORDER
     Dosage: 100 MG MILLIGRAM(S), BID, UNKNOWN
     Dates: start: 20100101
  2. PLAVIX [Suspect]
     Indication: ARTERIAL DISORDER
     Dosage: 75 MG MILLIGRAMS, DAILY DOSE, UNKNOWN
     Dates: start: 20100101
  3. BUDESONIDE [Concomitant]
  4. FORMOTEROL FUMARATE [Concomitant]

REACTIONS (1)
  - VITREOUS HAEMORRHAGE [None]
